FAERS Safety Report 6035960-9 (Version None)
Quarter: 2009Q1

REPORT INFORMATION
  Report Type: 
  Country: None (occurrence: None)
  Receive Date: 20090113
  Receipt Date: 20090105
  Transmission Date: 20090719
  Serious: Yes (Death)
  Sender: FDA-Public Use
  Company Number: US-MERCK-0812USA05174

PATIENT
  Age: 51 Year
  Sex: Male

DRUGS (10)
  1. SINGULAIR [Suspect]
     Route: 048
  2. ACETAMINOPHEN [Suspect]
     Route: 048
  3. LISINOPRIL [Suspect]
     Route: 048
  4. CLONIDINE [Suspect]
     Route: 048
  5. ASPIRIN [Suspect]
     Route: 048
  6. FLUOXETINE [Suspect]
     Route: 048
  7. LAMOTRIGINE [Suspect]
     Route: 048
  8. POTASSIUM CHLORIDE [Suspect]
     Route: 048
  9. TRAMADOL HYDROCHLORIDE [Suspect]
     Route: 048
  10. HYDROCHLOROTHIAZIDE [Suspect]
     Route: 048

REACTIONS (1)
  - COMPLETED SUICIDE [None]
